FAERS Safety Report 4530789-2 (Version None)
Quarter: 2004Q4

REPORT INFORMATION
  Report Type: 
  Country: None (occurrence: None)
  Receive Date: 20041216
  Receipt Date: 20041130
  Transmission Date: 20050328
  Serious: Yes (Death, Life-Threatening, Hospitalization, Disabling)
  Sender: FDA-Public Use
  Company Number: EWC041141397

PATIENT
  Age: 58 Year
  Sex: Male

DRUGS (4)
  1. GEMCITABINE HYDROCHLORIDE-IV (GEMCITABINE ) [Suspect]
     Indication: NON-SMALL CELL LUNG CANCER
     Dosage: 1600 MG/2 OTHER
     Route: 050
     Dates: end: 20041014
  2. CISPLATIN [Concomitant]
  3. DICLOFENAC [Concomitant]
  4. TRAMADOL HCL [Concomitant]

REACTIONS (3)
  - ACUTE RESPIRATORY DISTRESS SYNDROME [None]
  - CARDIAC DISORDER [None]
  - CARDIO-RESPIRATORY ARREST [None]
